FAERS Safety Report 8058333-6 (Version None)
Quarter: 2012Q1

REPORT INFORMATION
  Report Type: 
  Country: None (occurrence: None)
  Receive Date: 20120120
  Receipt Date: 20120113
  Transmission Date: 20120608
  Serious: Yes (Other)
  Sender: FDA-Public Use
  Company Number: HR-JNJFOC-20120104874

PATIENT
  Sex: Female
  Weight: 55 kg

DRUGS (4)
  1. METHOTREXATE [Concomitant]
     Indication: CROHN'S DISEASE
     Route: 030
     Dates: start: 20080101, end: 20110101
  2. REMICADE [Suspect]
     Indication: CROHN'S DISEASE
     Route: 042
     Dates: start: 20100801, end: 20101201
  3. METHOTREXATE [Concomitant]
     Route: 030
     Dates: start: 20110101
  4. METHOTREXATE [Concomitant]
     Route: 030

REACTIONS (2)
  - ALOPECIA [None]
  - PSORIASIS [None]
